FAERS Safety Report 19004795 (Version 1)
Quarter: 2021Q1

REPORT INFORMATION
  Report Type: Spontaneous
  Country: US (occurrence: US)
  Receive Date: 20210312
  Receipt Date: 20210312
  Transmission Date: 20210420
  Serious: No
  Sender: FDA-Public Use
  Company Number: US-NEPHRON PHARMACEUTICALS CORPORATION-2107934

PATIENT
  Age: 89 Year
  Sex: Female
  Weight: 72.73 kg

DRUGS (7)
  1. AMLODIPINE [Concomitant]
     Active Substance: AMLODIPINE BESYLATE
  2. TYLENOL [Concomitant]
     Active Substance: ACETAMINOPHEN
  3. IPRATROPIUM BROMIDE AND ALBUTEROL SULFATE [Suspect]
     Active Substance: ALBUTEROL SULFATE\IPRATROPIUM BROMIDE
     Route: 055
     Dates: start: 20210208, end: 20210222
  4. ADVIL [Concomitant]
     Active Substance: IBUPROFEN
  5. MELOXICAM. [Concomitant]
     Active Substance: MELOXICAM
  6. ACID REDUCER (OMEPRAZOLE MAGNESIUM) [Concomitant]
     Active Substance: OMEPRAZOLE MAGNESIUM
  7. VISTARIL [Concomitant]
     Active Substance: HYDROXYZINE PAMOATE

REACTIONS (2)
  - Skin exfoliation [Recovered/Resolved]
  - Peripheral swelling [Recovered/Resolved]

NARRATIVE: CASE EVENT DATE: 20210222
